FAERS Safety Report 9479620 (Version 2)
Quarter: 2013Q4

REPORT INFORMATION
  Report Type: Spontaneous
  Country: US (occurrence: US)
  Receive Date: 20130827
  Receipt Date: 20131009
  Transmission Date: 20140711
  Serious: Yes (Other)
  Sender: FDA-Public Use
  Company Number: PHEH2013US017875

PATIENT
  Sex: Female

DRUGS (4)
  1. VIVELLE DOT [Suspect]
     Dosage: 0.05 MG, TWICE WEEKLY
     Route: 062
  2. NEXIUM HP [Concomitant]
     Dosage: UNK UKN, UNK
  3. VITAMIN D [Concomitant]
     Dosage: UNK UKN, UNK
  4. MULTIVITAMIN HP [Concomitant]
     Dosage: UNK UKN, UNK

REACTIONS (5)
  - Fall [Unknown]
  - Concussion [Unknown]
  - Product adhesion issue [Unknown]
  - Hot flush [Unknown]
  - Drug effect decreased [Unknown]
